FAERS Safety Report 15125447 (Version 1)
Quarter: 2018Q3

REPORT INFORMATION
  Report Type: Spontaneous
  Country: US (occurrence: US)
  Receive Date: 20180710
  Receipt Date: 20180710
  Transmission Date: 20181010
  Serious: Yes (Other)
  Sender: FDA-Public Use
  Company Number: US-MYLANLABS-2018M1047972

PATIENT
  Age: 65 Year
  Sex: Female
  Weight: 78 kg

DRUGS (3)
  1. TART CHERRY [Concomitant]
     Indication: SLEEP DISORDER
     Dosage: UNK
  2. MELATONIN [Concomitant]
     Active Substance: MELATONIN
     Indication: SLEEP DISORDER
     Dosage: UNK
  3. CORTIFOAM [Suspect]
     Active Substance: HYDROCORTISONE ACETATE
     Indication: COLITIS ULCERATIVE
     Dosage: 1 DF, BID
     Route: 054
     Dates: start: 2011

REACTIONS (10)
  - Neuropathy peripheral [Not Recovered/Not Resolved]
  - Insomnia [Not Recovered/Not Resolved]
  - Intraocular pressure increased [Not Recovered/Not Resolved]
  - Fatigue [Not Recovered/Not Resolved]
  - Expired product administered [Unknown]
  - Muscle spasms [Unknown]
  - Skin irritation [Unknown]
  - Type 2 diabetes mellitus [Not Recovered/Not Resolved]
  - Haemorrhage [Unknown]
  - Drug ineffective [Unknown]

NARRATIVE: CASE EVENT DATE: 201806
